FAERS Safety Report 9475609 (Version 3)
Quarter: 2013Q4

REPORT INFORMATION
  Report Type: Spontaneous
  Country: US (occurrence: None)
  Receive Date: 20130821
  Receipt Date: 20131015
  Transmission Date: 20140711
  Serious: Yes (Other)
  Sender: FDA-Public Use
  Company Number: 1225574

PATIENT
  Age: 19 Year
  Sex: Male
  Weight: 52.16 kg

DRUGS (2)
  1. DRAMAMINE [Suspect]
     Indication: MOTION SICKNESS
     Route: 048
     Dates: start: 20130731
  2. PROACTIV [Concomitant]

REACTIONS (8)
  - Movement disorder [None]
  - Tonic convulsion [None]
  - Musculoskeletal stiffness [None]
  - Muscle rigidity [None]
  - Sensation of heaviness [None]
  - Pallor [None]
  - Lethargy [None]
  - Feeling abnormal [None]
